FAERS Safety Report 6188142-4 (Version None)
Quarter: 2009Q2

REPORT INFORMATION
  Report Type: 
  Country: None (occurrence: None)
  Receive Date: 20090513
  Receipt Date: 20080612
  Transmission Date: 20091009
  Serious: No
  Sender: FDA-Public Use
  Company Number: A0727270A

PATIENT
  Age: 76 Year
  Sex: Female

DRUGS (10)
  1. DYNACIRC CR [Suspect]
     Indication: HYPERTENSION
     Dosage: 5MG PER DAY
     Route: 048
     Dates: start: 20071201
  2. CLONIDINE [Concomitant]
  3. BENAZEPRIL HYDROCHLORIDE [Concomitant]
  4. TELTONAL [Concomitant]
  5. AMITIZA [Concomitant]
  6. IBUPROFEN [Concomitant]
  7. VICODIN [Concomitant]
  8. PREVACID [Concomitant]
  9. SOMA [Concomitant]
  10. XANAX [Concomitant]

REACTIONS (2)
  - MEDICATION RESIDUE [None]
  - PRODUCT QUALITY ISSUE [None]
